FAERS Safety Report 9869134 (Version 2)
Quarter: 2014Q1

REPORT INFORMATION
  Report Type: Spontaneous
  Country: US (occurrence: US)
  Receive Date: 20140205
  Receipt Date: 20140303
  Transmission Date: 20141002
  Serious: No
  Sender: FDA-Public Use
  Company Number: US-BIOGENIDEC-2014BI010273

PATIENT
  Age: 45 Year
  Sex: Male

DRUGS (2)
  1. AVONEX [Suspect]
     Indication: MULTIPLE SCLEROSIS
     Route: 030
     Dates: start: 19960709, end: 20140119
  2. AVONEX [Suspect]
     Indication: MULTIPLE SCLEROSIS
     Route: 030
     Dates: start: 20140126

REACTIONS (6)
  - Mobility decreased [Recovered/Resolved]
  - Clumsiness [Recovered/Resolved]
  - Progressive multiple sclerosis [Recovered/Resolved]
  - Multiple sclerosis [Recovered/Resolved]
  - Psychiatric symptom [Recovered/Resolved]
  - Muscular weakness [Not Recovered/Not Resolved]
